FAERS Safety Report 9143167 (Version 1)
Quarter: 2013Q1

REPORT INFORMATION
  Report Type: Spontaneous
  Country: US (occurrence: US)
  Receive Date: 20130306
  Receipt Date: 20130306
  Transmission Date: 20140127
  Serious: No
  Sender: FDA-Public Use
  Company Number: US-ENDO PHARMACEUTICALS INC.-OPCR20120768

PATIENT
  Sex: Female

DRUGS (2)
  1. OPANA ER 20MG [Suspect]
     Indication: BACK PAIN
     Route: 048
     Dates: start: 2010, end: 201205
  2. OPANA ER 20MG [Suspect]
     Indication: BACK PAIN
     Route: 048
     Dates: start: 20120505

REACTIONS (9)
  - Pulmonary congestion [Recovered/Resolved]
  - Photophobia [Recovered/Resolved]
  - Muscle twitching [Not Recovered/Not Resolved]
  - Rash pruritic [Recovered/Resolved]
  - Rash vesicular [Recovered/Resolved]
  - Headache [Recovered/Resolved]
  - Nervousness [Not Recovered/Not Resolved]
  - Fatigue [Not Recovered/Not Resolved]
  - Sleep disorder [Not Recovered/Not Resolved]
